FAERS Safety Report 20146665 (Version 1)
Quarter: 2021Q4

REPORT INFORMATION
  Report Type: Spontaneous
  Country: US (occurrence: None)
  Receive Date: 20211203
  Receipt Date: 20211203
  Transmission Date: 20220304
  Serious: Yes (Death)
  Sender: FDA-Public Use
  Company Number: None

PATIENT
  Age: 62 Year
  Sex: Female

DRUGS (2)
  1. MYCOPHENOLIC ACID [Suspect]
     Active Substance: MYCOPHENOLIC ACID
     Indication: Renal transplant
     Dosage: FREQUENCY : TWICE A DAY;?
     Route: 048
     Dates: start: 20200106, end: 20211202
  2. TACROLIMUS [Concomitant]
     Active Substance: TACROLIMUS
     Dates: start: 20200106, end: 20211202

REACTIONS (1)
  - Death [None]

NARRATIVE: CASE EVENT DATE: 20211202
